FAERS Safety Report 9236976 (Version 1)
Quarter: 2013Q2

REPORT INFORMATION
  Report Type: Spontaneous
  Country: US (occurrence: US)
  Receive Date: 20130417
  Receipt Date: 20130417
  Transmission Date: 20140414
  Serious: No
  Sender: FDA-Public Use
  Company Number: US-PFIZER INC-2013120818

PATIENT
  Sex: Male

DRUGS (1)
  1. LYRICA [Suspect]
     Indication: HERPES ZOSTER
     Dosage: 50 MG, 1X/DAY
     Dates: start: 201304

REACTIONS (2)
  - Drug ineffective [Unknown]
  - Pain [Unknown]
